FAERS Safety Report 8474065 (Version 2)
Quarter: 2025Q2

REPORT INFORMATION
  Report Type: Spontaneous
  Country: FR (occurrence: FR)
  Receive Date: 20120323
  Receipt Date: 20250408
  Transmission Date: 20250717
  Serious: Yes (Hospitalization)
  Sender: PFIZER
  Company Number: FR-PFIZER INC-2012070535

PATIENT
  Age: 16 Year
  Sex: Female
  Weight: 58 kg

DRUGS (13)
  1. CYTARABINE [Suspect]
     Active Substance: CYTARABINE
     Indication: T-cell type acute leukaemia
     Route: 037
     Dates: start: 20120121, end: 20120121
  2. CYTARABINE [Suspect]
     Active Substance: CYTARABINE
     Route: 037
     Dates: start: 20120126, end: 20120126
  3. HYDROCORTISONE [Suspect]
     Active Substance: HYDROCORTISONE
     Indication: T-cell type acute leukaemia
     Route: 037
     Dates: start: 20120121, end: 20120121
  4. HYDROCORTISONE [Suspect]
     Active Substance: HYDROCORTISONE
     Route: 037
     Dates: start: 20120126, end: 20120126
  5. METHOTREXATE SODIUM [Suspect]
     Active Substance: METHOTREXATE SODIUM
     Indication: T-cell type acute leukaemia
     Route: 037
     Dates: start: 20120121, end: 20120121
  6. METHOTREXATE SODIUM [Suspect]
     Active Substance: METHOTREXATE SODIUM
     Dosage: 12 MG, 1X/DAY
     Route: 037
     Dates: start: 20120126, end: 20120126
  7. ELDISINE [Suspect]
     Active Substance: VINDESINE SULFATE
     Route: 042
     Dates: start: 20120120, end: 20120120
  8. IFOSFAMIDE [Suspect]
     Active Substance: IFOSFAMIDE
     Indication: T-cell type acute leukaemia
     Dosage: 656 MG, 1X/DAY
     Route: 042
     Dates: start: 20120120, end: 20120124
  9. MESNA [Suspect]
     Active Substance: MESNA
     Indication: T-cell type acute leukaemia
     Dosage: 330 MG, 1X/DAY
     Route: 042
     Dates: start: 20120120, end: 20120124
  10. CERUBIDINE [Suspect]
     Active Substance: DAUNORUBICIN HYDROCHLORIDE
     Indication: T-cell type acute leukaemia
     Dosage: 57 MG, 1X/DAY
     Route: 042
     Dates: start: 20120124, end: 20120124
  11. METHOTREXATE [Suspect]
     Active Substance: METHOTREXATE
     Indication: T-cell type acute leukaemia
     Route: 041
     Dates: start: 20120120, end: 20120120
  12. FUROSEMIDE [Concomitant]
     Active Substance: FUROSEMIDE
     Dosage: 120 MG, 1X/DAY
     Dates: start: 20120120, end: 20120124
  13. LEVOLEUCOVORIN CALCIUM [Concomitant]
     Active Substance: LEVOLEUCOVORIN CALCIUM
     Indication: T-cell type acute leukaemia
     Dosage: 12.5 MG, 1X/DAY
     Dates: start: 20120121, end: 20120122

REACTIONS (2)
  - Dermatitis bullous [Recovered/Resolved with Sequelae]
  - Mucosal inflammation [Unknown]

NARRATIVE: CASE EVENT DATE: 20120125
